FAERS Safety Report 23582179 (Version 4)
Quarter: 2025Q3

REPORT INFORMATION
  Report Type: Spontaneous
  Country: US (occurrence: US)
  Receive Date: 20240229
  Receipt Date: 20250911
  Transmission Date: 20251021
  Serious: No
  Sender: SANOFI AVENTIS
  Company Number: US-SA-2024SA064512

PATIENT
  Sex: Male
  Weight: 28.118 kg

DRUGS (15)
  1. NEXVIAZYME [Suspect]
     Active Substance: AVALGLUCOSIDASE ALFA-NGPT
     Indication: Glycogen storage disease type II
     Dosage: 1000 MG, QOW
     Route: 042
     Dates: start: 20220502
  2. NEXVIAZYME [Suspect]
     Active Substance: AVALGLUCOSIDASE ALFA-NGPT
     Dosage: 1100 MG, QOW
     Route: 042
  3. NEXVIAZYME [Suspect]
     Active Substance: AVALGLUCOSIDASE ALFA-NGPT
     Dosage: 1200 MG, QOW
     Route: 042
  4. BACTRIM [Suspect]
     Active Substance: SULFAMETHOXAZOLE\TRIMETHOPRIM
     Route: 065
  5. STERILE WATER [Concomitant]
     Active Substance: WATER
  6. EPINEPHRINE [Concomitant]
     Active Substance: EPINEPHRINE
  7. ACETAMINOPHEN [Concomitant]
     Active Substance: ACETAMINOPHEN
  8. HEPARIN [Concomitant]
     Active Substance: HEPARIN SODIUM
  9. SODIUM CHLORIDE [Concomitant]
     Active Substance: SODIUM CHLORIDE
  10. LIDOCAINE [Concomitant]
     Active Substance: LIDOCAINE
  11. LIDOCAINE\PRILOCAINE [Concomitant]
     Active Substance: LIDOCAINE\PRILOCAINE
  12. DIPHENHYDRAMINE [Concomitant]
     Active Substance: DIPHENHYDRAMINE
  13. DEXTROSE [Concomitant]
     Active Substance: DEXTROSE MONOHYDRATE
  14. IBUPROFEN [Concomitant]
     Active Substance: IBUPROFEN
  15. LEVOCARNITINE [Concomitant]
     Active Substance: LEVOCARNITINE

REACTIONS (4)
  - Ear infection [Not Recovered/Not Resolved]
  - Pharyngitis streptococcal [Unknown]
  - Drug hypersensitivity [Unknown]
  - Pyrexia [Unknown]
